FAERS Safety Report 8686076 (Version 2)
Quarter: 2013Q2

REPORT INFORMATION
  Report Type: Spontaneous
  Country: US (occurrence: US)
  Receive Date: 20120726
  Receipt Date: 20130403
  Transmission Date: 20140414
  Serious: No
  Sender: FDA-Public Use
  Company Number: US-ASTRAZENECA-2011SE59116

PATIENT
  Age: 44 Year
  Sex: Female
  Weight: 95.3 kg

DRUGS (8)
  1. SEROQUEL [Suspect]
     Route: 048
  2. ANUSOL HC [Suspect]
     Indication: PAIN
     Route: 065
  3. PERCOCET [Suspect]
     Dosage: 5-325 MG, I TABLET BY MOUTH TWICE A SAY AS NEEDED
     Route: 048
  4. PROMETHAZINE HCL [Concomitant]
     Indication: NAUSEA
  5. TRAMADOL HCL [Concomitant]
  6. METHYLPHENIDATE HCL [Concomitant]
  7. ATIVAN [Concomitant]
  8. VALTREX [Concomitant]

REACTIONS (10)
  - Haemorrhoids [Unknown]
  - Anorectal disorder [Unknown]
  - Anorectal disorder [Unknown]
  - Proctalgia [Unknown]
  - Attention deficit/hyperactivity disorder [Unknown]
  - Bipolar disorder [Unknown]
  - Sleep disorder [Unknown]
  - Malaise [Unknown]
  - Nasopharyngitis [Unknown]
  - Drug dose omission [Unknown]
